FAERS Safety Report 10657700 (Version 2)
Quarter: 2014Q4

REPORT INFORMATION
  Report Type: Spontaneous
  Country: US (occurrence: US)
  Receive Date: 20141217
  Receipt Date: 20141217
  Transmission Date: 20150529
  Serious: No
  Sender: FDA-Public Use
  Company Number: US-GLAXOSMITHKLINE-A1050840A

PATIENT

DRUGS (5)
  1. XANAX [Concomitant]
     Active Substance: ALPRAZOLAM
  2. VOTRIENT [Suspect]
     Active Substance: PAZOPANIB HYDROCHLORIDE
     Indication: RENAL CANCER
     Dosage: 200 MG TABLETS, 800 MG DAILY
     Route: 048
     Dates: start: 20131008
  3. TRAMADOL [Concomitant]
     Active Substance: TRAMADOL
  4. CYMBALTA [Concomitant]
     Active Substance: DULOXETINE HYDROCHLORIDE
  5. CELEBREX [Concomitant]
     Active Substance: CELECOXIB

REACTIONS (5)
  - Hepatic enzyme increased [Unknown]
  - Abdominal discomfort [Not Recovered/Not Resolved]
  - Abdominal distension [Not Recovered/Not Resolved]
  - Diarrhoea [Not Recovered/Not Resolved]
  - Flatulence [Not Recovered/Not Resolved]

NARRATIVE: CASE EVENT DATE: 20131008
